FAERS Safety Report 6711164-9 (Version None)
Quarter: 2010Q2

REPORT INFORMATION
  Report Type: 
  Country: None (occurrence: None)
  Receive Date: 20100505
  Receipt Date: 20100426
  Transmission Date: 20101027
  Serious: Yes (Other)
  Sender: FDA-Public Use
  Company Number: CA-JNJFOC-20100406161

PATIENT
  Sex: Male
  Weight: 75 kg

DRUGS (15)
  1. REMICADE [Suspect]
     Indication: RHEUMATOID ARTHRITIS
     Route: 042
  2. ASPIRIN [Concomitant]
  3. LIPITOR [Concomitant]
  4. BISOPROLOL FUMARATE [Concomitant]
  5. SPIRIVA [Concomitant]
     Route: 055
  6. ACTONEL [Concomitant]
  7. PREVACID [Concomitant]
  8. METFORMIN [Concomitant]
  9. BRICANYL [Concomitant]
  10. PULMICORT [Concomitant]
  11. PREDNISONE [Concomitant]
  12. FLOMAX [Concomitant]
  13. COVERSYL [Concomitant]
  14. NITROGLYCERIN [Concomitant]
  15. MOS [Concomitant]

REACTIONS (1)
  - BENIGN PROSTATIC HYPERPLASIA [None]
